FAERS Safety Report 4486108-3 (Version None)
Quarter: 2004Q4

REPORT INFORMATION
  Report Type: 
  Country: None (occurrence: None)
  Receive Date: 20041026
  Receipt Date: 20041020
  Transmission Date: 20050328
  Serious: Yes (Other)
  Sender: FDA-Public Use
  Company Number: US-MERCK-0410USA03210

PATIENT
  Age: 51 Year
  Sex: Female

DRUGS (5)
  1. EMEND [Suspect]
     Indication: NAUSEA
     Route: 048
  2. DECADRON [Suspect]
     Indication: NAUSEA
     Route: 048
  3. ADRIAMYCIN PFS [Concomitant]
     Indication: CHEMOTHERAPY
     Route: 065
  4. CYTOXAN [Concomitant]
     Indication: CHEMOTHERAPY
     Route: 065
  5. TAXOTERE [Concomitant]
     Indication: CHEMOTHERAPY
     Route: 065

REACTIONS (1)
  - PNEUMOCYSTIS CARINII PNEUMONIA [None]
